FAERS Safety Report 23223151 (Version 1)
Quarter: 2023Q4

REPORT INFORMATION
  Report Type: Spontaneous
  Country: US (occurrence: US)
  Receive Date: 20231123
  Receipt Date: 20231123
  Transmission Date: 20240110
  Serious: Yes (Hospitalization, Other)
  Sender: FDA-Public Use
  Company Number: US-BRISTOL-MYERS SQUIBB COMPANY-2023-166199

PATIENT
  Age: 52 Year
  Sex: Male

DRUGS (1)
  1. LISOCABTAGENE MARALEUCEL [Suspect]
     Active Substance: LISOCABTAGENE MARALEUCEL
     Indication: Product used for unknown indication
     Route: 042
     Dates: start: 202105

REACTIONS (5)
  - Cytokine release syndrome [Recovered/Resolved]
  - Gait inability [Recovered/Resolved]
  - Disorientation [Recovered/Resolved]
  - Agraphia [Recovered/Resolved]
  - Cognitive disorder [Recovered/Resolved]
